FAERS Safety Report 17316728 (Version 3)
Quarter: 2020Q1

REPORT INFORMATION
  Report Type: Spontaneous
  Country: JP (occurrence: JP)
  Receive Date: 20200124
  Receipt Date: 20200214
  Transmission Date: 20200409
  Serious: Yes (Other)
  Sender: FDA-Public Use
  Company Number: JP-ASTRAZENECA-2019SF81696

PATIENT
  Age: 28229 Day
  Sex: Male
  Weight: 56 kg

DRUGS (6)
  1. LYRICA [Concomitant]
     Active Substance: PREGABALIN
     Indication: NEURALGIA
     Route: 048
  2. NEXIUM [Concomitant]
     Active Substance: ESOMEPRAZOLE MAGNESIUM
     Indication: GASTROOESOPHAGEAL REFLUX DISEASE
     Route: 048
  3. PREDONINE [Concomitant]
     Active Substance: PREDNISOLONE
     Dosage: 20.0MG UNKNOWN
  4. IMFINZI [Suspect]
     Active Substance: DURVALUMAB
     Indication: NON-SMALL CELL LUNG CANCER
     Route: 041
     Dates: start: 20191112, end: 20191112
  5. CARBOPLATIN. [Suspect]
     Active Substance: CARBOPLATIN
     Indication: NON-SMALL CELL LUNG CANCER
     Dosage: DOSE UNKNOWN
     Route: 041
     Dates: start: 20190826, end: 20190912
  6. CALONAL [Concomitant]
     Active Substance: ACETAMINOPHEN
     Indication: BACK PAIN
     Route: 048

REACTIONS (6)
  - Thrombocytopenia [Recovering/Resolving]
  - Leukopenia [Recovering/Resolving]
  - Physical deconditioning [Unknown]
  - Radiation pneumonitis [Recovering/Resolving]
  - Anaemia [Recovering/Resolving]
  - Bone marrow failure [Unknown]

NARRATIVE: CASE EVENT DATE: 20191115
